FAERS Safety Report 6306014-9 (Version None)
Quarter: 2009Q3

REPORT INFORMATION
  Report Type: 
  Country: None (occurrence: None)
  Receive Date: 20090812
  Receipt Date: 20090731
  Transmission Date: 20100115
  Serious: Yes (Hospitalization, Other)
  Sender: FDA-Public Use
  Company Number: DE-PFIZER INC-2009241744

PATIENT
  Age: 69 Year

DRUGS (2)
  1. SUTENT [Suspect]
     Indication: METASTATIC RENAL CELL CARCINOMA
     Dosage: 50 MG DAILY, 2 WEEKS ON AND 2 WEEKS OFF
     Route: 048
     Dates: start: 20060901, end: 20090501
  2. SIMVASTATIN [Suspect]
     Dosage: UNK
     Dates: end: 20090101

REACTIONS (8)
  - ACUTE MYOCARDIAL INFARCTION [None]
  - CARDIAC FAILURE [None]
  - CYANOSIS [None]
  - DYSPNOEA [None]
  - GOUT [None]
  - HEPATIC ENZYME INCREASED [None]
  - OEDEMA [None]
  - TACHYCARDIA [None]
